FAERS Safety Report 12478990 (Version 1)
Quarter: 2016Q2

REPORT INFORMATION
  Report Type: Spontaneous
  Country: US (occurrence: US)
  Receive Date: 20160620
  Receipt Date: 20160620
  Transmission Date: 20160815
  Serious: Yes (Other)
  Sender: FDA-Public Use
  Company Number: US-BEH-2016070332

PATIENT
  Sex: Female
  Weight: 52.61 kg

DRUGS (26)
  1. KLONOPIN [Concomitant]
     Active Substance: CLONAZEPAM
  2. ACETAMINOPHEN. [Concomitant]
     Active Substance: ACETAMINOPHEN
  3. LINACLOTIDE [Concomitant]
     Active Substance: LINACLOTIDE
  4. BYSTOLIC [Concomitant]
     Active Substance: NEBIVOLOL HYDROCHLORIDE
  5. LIPITOR [Concomitant]
     Active Substance: ATORVASTATIN CALCIUM
  6. VITAMIN D2 [Concomitant]
     Active Substance: ERGOCALCIFEROL
  7. ASPIRIN. [Concomitant]
     Active Substance: ASPIRIN
  8. EPIPEN [Concomitant]
     Active Substance: EPINEPHRINE
  9. DULERA [Concomitant]
     Active Substance: FORMOTEROL FUMARATE DIHYDRATE\MOMETASONE FUROATE
  10. ZYRTEC [Concomitant]
     Active Substance: CETIRIZINE HYDROCHLORIDE
  11. CIPRO [Concomitant]
     Active Substance: CIPROFLOXACIN HYDROCHLORIDE
  12. CEFTIN [Concomitant]
     Active Substance: CEFUROXIME AXETIL
  13. ZETIA [Concomitant]
     Active Substance: EZETIMIBE
  14. RECLAST [Concomitant]
     Active Substance: ZOLEDRONIC ACID
  15. CULTURELLE [Concomitant]
     Active Substance: LACTOBACILLUS RHAMNOSUS
  16. VALTREX [Concomitant]
     Active Substance: VALACYCLOVIR HYDROCHLORIDE
  17. DIPHENHYDRAMINE. [Concomitant]
     Active Substance: DIPHENHYDRAMINE
  18. BACTRIM [Concomitant]
     Active Substance: SULFAMETHOXAZOLE\TRIMETHOPRIM
  19. EFFEXOR [Concomitant]
     Active Substance: VENLAFAXINE HYDROCHLORIDE
  20. MULTIVITAMIN                       /00097801/ [Concomitant]
     Active Substance: VITAMINS
  21. NORCO [Concomitant]
     Active Substance: ACETAMINOPHEN\HYDROCODONE BITARTRATE
  22. SODIUM CHLORIDE. [Concomitant]
     Active Substance: SODIUM CHLORIDE
  23. CLINDAMYCIN [Concomitant]
     Active Substance: CLINDAMYCIN\CLINDAMYCIN PHOSPHATE
  24. DEXILANT [Concomitant]
     Active Substance: DEXLANSOPRAZOLE
  25. VAGIFEM [Concomitant]
     Active Substance: ESTRADIOL
  26. PRIVIGEN [Suspect]
     Active Substance: HUMAN IMMUNOGLOBULIN G
     Indication: IMMUNODEFICIENCY COMMON VARIABLE
     Dosage: 40 MG, EVERY 4 WEEKS
     Route: 042
     Dates: start: 20111024

REACTIONS (5)
  - Atrioventricular block [Unknown]
  - Dizziness [Unknown]
  - Heart rate decreased [Unknown]
  - Atrial fibrillation [Unknown]
  - Atrial flutter [Unknown]
